FAERS Safety Report 24156482 (Version 1)
Quarter: 2024Q3

REPORT INFORMATION
  Report Type: Spontaneous
  Country: IR (occurrence: None)
  Receive Date: 20240731
  Receipt Date: 20240731
  Transmission Date: 20241016
  Serious: Yes (Other)
  Sender: ASTRAZENECA
  Company Number: 2024A168686

PATIENT
  Age: 72 Year
  Sex: Male

DRUGS (8)
  1. TICAGRELOR [Suspect]
     Active Substance: TICAGRELOR
     Indication: Antiplatelet therapy
     Dosage: 180.0MG ONCE/SINGLE ADMINISTRATION
     Route: 048
  2. TICAGRELOR [Suspect]
     Active Substance: TICAGRELOR
     Indication: Antiplatelet therapy
     Dosage: 90.0MG ONCE/SINGLE ADMINISTRATION
     Route: 048
  3. ASPIRIN [Concomitant]
     Active Substance: ASPIRIN
     Indication: Antiplatelet therapy
     Dosage: 300.0MG ONCE/SINGLE ADMINISTRATION
     Route: 048
  4. ASPIRIN [Concomitant]
     Active Substance: ASPIRIN
     Indication: Antiplatelet therapy
     Dosage: 80.0MG ONCE/SINGLE ADMINISTRATION
     Route: 048
  5. ATORVASTATIN [Concomitant]
     Active Substance: ATORVASTATIN
     Route: 048
  6. AMP HEPARIN [Concomitant]
     Dosage: 7500-10000 IU/H DURING PCI
  7. NITROGLYCERINE LONG ACTING [Concomitant]
     Route: 048
  8. NICORANDIL [Concomitant]
     Active Substance: NICORANDIL
     Route: 048

REACTIONS (1)
  - Long QT syndrome [Recovering/Resolving]
